FAERS Safety Report 5370758-6 (Version None)
Quarter: 2007Q2

REPORT INFORMATION
  Report Type: 
  Country: None (occurrence: None)
  Receive Date: 20070618
  Receipt Date: 20061205
  Transmission Date: 20071010
  Serious: Yes (Hospitalization, Other)
  Sender: FDA-Public Use
  Company Number: PHEH2006US13092

PATIENT
  Age: 75 Year
  Sex: Female

DRUGS (4)
  1. GLEEVEC [Suspect]
     Indication: CHRONIC MYELOID LEUKAEMIA
     Dosage: 400 MG, QD, ORAL
     Route: 048
     Dates: start: 20051006, end: 20060921
  2. HYDROXYUREA [Concomitant]
  3. NEURONTIN [Concomitant]
  4. FOSAMAX [Concomitant]

REACTIONS (10)
  - ASCITES [None]
  - BLOOD CREATININE INCREASED [None]
  - COMPUTERISED TOMOGRAM ABNORMAL [None]
  - GENERALISED OEDEMA [None]
  - NEUROPATHY [None]
  - OEDEMA PERIPHERAL [None]
  - OSTEOPOROSIS [None]
  - RENAL FAILURE [None]
  - THROMBOCYTHAEMIA [None]
  - WHITE BLOOD CELL COUNT INCREASED [None]
